FAERS Safety Report 8984457 (Version 1)
Quarter: 2012Q4

REPORT INFORMATION
  Report Type: 
  Country: TR (occurrence: TR)
  Receive Date: 20121226
  Receipt Date: 20121226
  Transmission Date: 20130627
  Serious: Yes (Other)
  Sender: FDA-Public Use
  Company Number: TR-BRISTOL-MYERS SQUIBB COMPANY-17222225

PATIENT
  Sex: Female

DRUGS (2)
  1. WARFARIN SODIUM [Suspect]
     Indication: DEEP VEIN THROMBOSIS
     Route: 048
  2. ENOXAPARIN SODIUM [Suspect]
     Indication: DEEP VEIN THROMBOSIS
     Route: 058

REACTIONS (2)
  - Haemorrhage [Recovered/Resolved]
  - Haemoglobin decreased [Recovered/Resolved]
